FAERS Safety Report 25901316 (Version 1)
Quarter: 2025Q4

REPORT INFORMATION
  Report Type: Spontaneous
  Country: JP (occurrence: JP)
  Receive Date: 20251009
  Receipt Date: 20251009
  Transmission Date: 20260118
  Serious: Yes (Hospitalization, Other)
  Sender: Haleon PLC
  Company Number: JP-002147023-NVSJ2024JP007194

PATIENT
  Age: 86 Year
  Sex: Female
  Weight: 57.9 kg

DRUGS (12)
  1. DICLOFENAC [Suspect]
     Active Substance: DICLOFENAC
     Indication: Back pain
     Dosage: THERAPY DATES (FROM): UNKNOWN?THERAPY DURATION: UNKNOWN
     Route: 048
     Dates: end: 20240604
  2. ENTRESTO [Concomitant]
     Active Substance: SACUBITRIL\VALSARTAN
  3. IRSOGLADINE MALEATE [Concomitant]
     Active Substance: IRSOGLADINE MALEATE
  4. FEBUXOSTAT [Concomitant]
     Active Substance: FEBUXOSTAT
  5. BISOPROLOL FUMARATE [Concomitant]
     Active Substance: BISOPROLOL FUMARATE
  6. FUROSEMIDE [Concomitant]
     Active Substance: FUROSEMIDE
  7. ESOMEPRAZOLE [Concomitant]
     Active Substance: ESOMEPRAZOLE
  8. DULOXETINE [Concomitant]
     Active Substance: DULOXETINE
  9. SHAKUYAKUKANZOTO [Concomitant]
     Active Substance: HERBALS
  10. REBAMIPIDE [Concomitant]
     Active Substance: REBAMIPIDE
  11. TAURINE [Concomitant]
     Active Substance: TAURINE
     Dosage: 98%
  12. DICLOFENAC SODIUM [Suspect]
     Active Substance: DICLOFENAC SODIUM
     Indication: Back pain
     Dosage: 1 SHEET/DAY?FIRST ADMIN DATE UNK
     Dates: end: 20240604

REACTIONS (6)
  - Gastric ulcer [Recovering/Resolving]
  - Cardiac failure [Unknown]
  - Dizziness [Unknown]
  - Faeces discoloured [Unknown]
  - Anaemia [Unknown]
  - Overdose [Unknown]

NARRATIVE: CASE EVENT DATE: 20240522
